FAERS Safety Report 6929756-0 (Version None)
Quarter: 2010Q3

REPORT INFORMATION
  Report Type: 
  Country: None (occurrence: None)
  Receive Date: 20100818
  Receipt Date: 20100809
  Transmission Date: 20110219
  Serious: Yes (Other)
  Sender: FDA-Public Use
  Company Number: FR-ASTRAZENECA-2010SE38042

PATIENT
  Age: 10016 Day
  Sex: Female

DRUGS (3)
  1. RHINOCORT [Suspect]
     Indication: BRONCHITIS
     Route: 045
     Dates: start: 20100604
  2. CEFUROXIME [Suspect]
     Indication: BRONCHITIS
     Route: 048
     Dates: start: 20100604, end: 20100611
  3. REVAXIS [Suspect]
     Indication: IMMUNISATION
     Dosage: ONE/SINGLE DOSE
     Route: 058
     Dates: start: 20100422

REACTIONS (2)
  - ABORTION INDUCED [None]
  - DRUG EXPOSURE DURING PREGNANCY [None]
